FAERS Safety Report 5943767-3 (Version None)
Quarter: 2008Q4

REPORT INFORMATION
  Report Type: 
  Country: None (occurrence: None)
  Receive Date: 20081106
  Receipt Date: 20081027
  Transmission Date: 20090506
  Serious: Yes (Other)
  Sender: FDA-Public Use
  Company Number: US-PFIZER INC-2008090448

PATIENT
  Age: 83 Year
  Sex: Female

DRUGS (1)
  1. CALAN [Suspect]
     Indication: HYPERTENSION
     Dates: start: 20080301

REACTIONS (2)
  - DYSARTHRIA [None]
  - FATIGUE [None]
